FAERS Safety Report 15003514 (Version 1)
Quarter: 2018Q2

REPORT INFORMATION
  Report Type: Report from Study
  Country: GB (occurrence: GB)
  Receive Date: 20180613
  Receipt Date: 20180613
  Transmission Date: 20180711
  Serious: Yes (Death)
  Sender: FDA-Public Use
  Company Number: GB-TEVA-2018-GB-905101

PATIENT
  Age: 60 Year
  Sex: Female
  Weight: 40 kg

DRUGS (42)
  1. PASPERTIN [METOCLOPRAMIDE HYDROCHLORIDE] [Suspect]
     Active Substance: METOCLOPRAMIDE HYDROCHLORIDE
     Dosage: 60 GTT DAILY;
     Route: 048
     Dates: start: 19980820, end: 19980820
  2. GLUCOSE [Concomitant]
     Active Substance: DEXTROSE
     Indication: FLUID REPLACEMENT
     Dosage: 500 ML DAILY;
     Route: 042
     Dates: start: 19980824, end: 19980824
  3. TAGAMET [Concomitant]
     Active Substance: CIMETIDINE
     Indication: PROPHYLAXIS AGAINST GASTROINTESTINAL ULCER
     Dosage: 1 (DAILY DOSE), , INTRAVENOUS
     Route: 042
     Dates: start: 19980826, end: 19980826
  4. HEPARIN-CALCIUM [Suspect]
     Active Substance: HEPARIN CALCIUM
     Indication: THROMBOSIS PROPHYLAXIS
     Dosage: 15000 IU (INTERNATIONAL UNIT) DAILY;
     Route: 058
     Dates: start: 19980811, end: 19980818
  5. FRAGMIN P [Suspect]
     Active Substance: DALTEPARIN SODIUM
     Indication: THROMBOSIS PROPHYLAXIS
     Dosage: 1 DOSAGE FORMS DAILY;
     Route: 058
     Dates: start: 19980818
  6. BENZYLPENICILLIN SODIUM [Suspect]
     Active Substance: PENICILLIN G SODIUM
     Indication: PNEUMONIA
     Dosage: 20 MU DAILY;
     Route: 042
     Dates: start: 19980821, end: 19980826
  7. ISOKET [Suspect]
     Active Substance: ISOSORBIDE DINITRATE
     Indication: HYPERTENSION
     Dosage: 60 MILLIGRAM DAILY;
     Route: 048
     Dates: start: 19980818
  8. UNAT [Suspect]
     Active Substance: TORSEMIDE
     Indication: CARDIAC FAILURE
     Dosage: 40 MILLIGRAM DAILY;
     Route: 048
     Dates: start: 19980808
  9. KALIUMKLORID [Concomitant]
     Indication: BLOOD POTASSIUM DECREASED
     Dosage: 3 DOSAGE FORMS DAILY;
     Route: 048
     Dates: start: 19980818, end: 19980820
  10. POTASSIUM CARBONATE/POTASSIUM CITRATE [Concomitant]
     Dosage: 1 DOSAGE FORMS DAILY;
     Route: 048
     Dates: start: 19980824, end: 19980825
  11. IRENAT [Concomitant]
     Active Substance: SODIUM PERCHLORATE
     Indication: HYPERTHYROIDISM
     Dosage: 60 GTT DAILY;
     Route: 048
     Dates: end: 19980828
  12. LOPIRIN COR [Concomitant]
     Active Substance: CAPTOPRIL
     Indication: HYPERTENSION
     Dosage: 2 DOSAGE FORMS DAILY;
     Route: 048
     Dates: end: 19980806
  13. ENALAPRIL MALEATE. [Suspect]
     Active Substance: ENALAPRIL MALEATE
     Indication: HYPERTENSION
     Dosage: 10 MILLIGRAM DAILY;
     Route: 048
     Dates: start: 19980811, end: 19980817
  14. EUGLUCON [Suspect]
     Active Substance: GLYBURIDE
     Indication: DIABETES MELLITUS
     Dosage: 1 DOSAGE FORMS DAILY;
     Route: 048
     Dates: end: 19980818
  15. EUGLUCON [Suspect]
     Active Substance: GLYBURIDE
     Route: 048
     Dates: start: 19980820, end: 19980821
  16. ACETYLSALICYLIC ACID 100 MG [Suspect]
     Active Substance: ASPIRIN
     Indication: THROMBOSIS PROPHYLAXIS
     Dosage: 100 MG, UNK
     Route: 048
  17. PASPERTIN [METOCLOPRAMIDE HYDROCHLORIDE] [Suspect]
     Active Substance: METOCLOPRAMIDE HYDROCHLORIDE
     Indication: NAUSEA
     Dosage: 20 GTT, UNK
     Route: 048
     Dates: start: 19980814, end: 19980818
  18. PASPERTIN [METOCLOPRAMIDE HYDROCHLORIDE] [Suspect]
     Active Substance: METOCLOPRAMIDE HYDROCHLORIDE
     Route: 048
     Dates: start: 19980821
  19. POTASSIUM CARBONATE/POTASSIUM CITRATE [Concomitant]
     Indication: BLOOD POTASSIUM DECREASED
     Dosage: 1 DOSAGE FORMS DAILY;
     Route: 048
     Dates: start: 19980821, end: 19980821
  20. ZIENAM [Concomitant]
     Active Substance: CILASTATIN SODIUM\IMIPENEM
     Indication: SEPSIS
     Dosage: 1500 MILLIGRAM DAILY;
     Route: 042
     Dates: start: 19980828
  21. AMINO ACIDS NOS/ELECTROLYTES NOS/VITAMINS NOS [Concomitant]
     Indication: FLUID REPLACEMENT
     Route: 042
     Dates: start: 19980811, end: 19980817
  22. AMINOQUINURIDE HYDROCHLORIDE/INSULIN ZINC SUSPENSION [Concomitant]
     Indication: DIABETES MELLITUS
     Dosage: 8 IU (INTERNATIONAL UNIT) DAILY; 8 IU (DAILY DOSE), , SUBCUTANEOUS
     Route: 058
  23. VANCOMYCIN [Suspect]
     Active Substance: VANCOMYCIN
     Indication: PNEUMONIA
     Route: 042
     Dates: start: 19980821, end: 19980826
  24. XANEF [ENALAPRIL MALEATE] [Suspect]
     Active Substance: ENALAPRIL MALEATE
     Indication: HYPERTENSION
     Dosage: 10 MILLIGRAM DAILY;
     Route: 048
     Dates: start: 19980818
  25. KALIUMKLORID [Concomitant]
     Route: 042
     Dates: start: 19980828, end: 19980828
  26. CARBIMAZOL [Concomitant]
     Active Substance: CARBIMAZOLE
     Indication: HYPERTHYROIDISM
     Dosage: 20 MILLIGRAM DAILY;
     Route: 048
  27. DOPMIN [DOPAMINE] [Concomitant]
     Indication: CIRCULATORY COLLAPSE
     Route: 042
     Dates: start: 19980808, end: 19980808
  28. ELECTROLYTES NOS [Concomitant]
     Active Substance: ELECTROLYTES NOS
     Indication: FLUID REPLACEMENT
     Dosage: 1000 ML DAILY;
     Route: 042
     Dates: start: 19980821, end: 19980828
  29. PASPERTIN [METOCLOPRAMIDE HYDROCHLORIDE] [Suspect]
     Active Substance: METOCLOPRAMIDE HYDROCHLORIDE
     Route: 042
     Dates: start: 19980808, end: 19980826
  30. DIGIMERCK [Suspect]
     Active Substance: DIGITOXIN
     Indication: CARDIAC FAILURE
     Dosage: 1 DOSAGE FORMS DAILY;
     Route: 048
     Dates: start: 19980812
  31. NOVALGIN (METAMIZOLE SODIUM) [Suspect]
     Active Substance: METAMIZOLE SODIUM
     Indication: PAIN
     Dosage: 20 GTT DAILY;
     Route: 048
     Dates: start: 19980811, end: 19980811
  32. SORTIS [Concomitant]
     Active Substance: ATORVASTATIN
     Indication: LIPIDS INCREASED
     Dosage: 10 MILLIGRAM DAILY;
     Route: 048
     Dates: start: 19980826
  33. LASIX [Suspect]
     Active Substance: FUROSEMIDE
     Indication: CARDIAC FAILURE
     Dosage: 1 DOSAGE FORMS DAILY;
     Route: 048
     Dates: end: 19980406
  34. POTASSIUM CHLORIDE. [Concomitant]
     Active Substance: POTASSIUM CHLORIDE
     Indication: BLOOD POTASSIUM DECREASED
     Dosage: 2 DOSAGE FORMS DAILY;
     Route: 048
     Dates: start: 19980814, end: 19980814
  35. ZOCOR [Concomitant]
     Active Substance: SIMVASTATIN
     Indication: HYPERTENSION
     Dosage: 20 MILLIGRAM DAILY;
     Route: 048
     Dates: start: 19980803, end: 19980818
  36. DILATREND [Suspect]
     Active Substance: CARVEDILOL
     Indication: HYPERTENSION
     Dosage: 13 MILLIGRAM DAILY;
     Route: 048
     Dates: start: 19980811
  37. PARACETAMOL [Concomitant]
     Active Substance: ACETAMINOPHEN
     Indication: ANALGESIC THERAPY
     Dosage: 500 MILLIGRAM DAILY; 500 MG (DAILY DOSE), , ORAL
     Route: 048
     Dates: start: 19980826
  38. SOLU-DECORTIN-H [Concomitant]
     Active Substance: PREDNISOLONE SODIUM SUCCINATE
     Indication: ERYTHEMA
     Dosage: 100 MILLIGRAM DAILY; 100 MG (DAILY DOSE), , INTRAVENOUS
     Route: 042
     Dates: start: 19980826, end: 19980826
  39. TAVEGIL [Concomitant]
     Active Substance: CLEMASTINE FUMARATE
     Indication: ERYTHEMA
     Dosage: 1 (DAILY DOSE), , INTRAVENOUS
     Route: 042
     Dates: start: 19980826, end: 19980826
  40. NOVODIGAL [DIGOXIN] [Concomitant]
     Active Substance: DIGOXIN
     Indication: CARDIAC FAILURE
     Dosage: .2 MILLIGRAM DAILY;
     Route: 048
     Dates: end: 19980812
  41. ANTRA [Concomitant]
     Active Substance: OMEPRAZOLE
     Indication: PROPHYLAXIS AGAINST GASTROINTESTINAL ULCER
     Dosage: 20 MILLIGRAM DAILY;
     Route: 048
     Dates: end: 19980818
  42. DEXPANTHENOL. [Concomitant]
     Active Substance: DEXPANTHENOL
     Indication: CIRCULATORY COLLAPSE
     Dosage: 4 (DAILY DOSE), , INTRAVENOUS
     Route: 042
     Dates: start: 19980808, end: 19980808

REACTIONS (2)
  - Circulatory collapse [Fatal]
  - Toxic epidermal necrolysis [Fatal]

NARRATIVE: CASE EVENT DATE: 19980826
